FAERS Safety Report 15755397 (Version 1)
Quarter: 2018Q4

REPORT INFORMATION
  Report Type: Spontaneous
  Country: US (occurrence: US)
  Receive Date: 20181224
  Receipt Date: 20181224
  Transmission Date: 20190205
  Serious: No
  Sender: FDA-Public Use
  Company Number: US-UNITED THERAPEUTICS-UNT-2018-020003

PATIENT
  Sex: Female

DRUGS (1)
  1. TYVASO [Suspect]
     Active Substance: TREPROSTINIL
     Indication: PULMONARY ARTERIAL HYPERTENSION
     Dosage: 54 ?G, QID
     Dates: start: 20180922, end: 20181212

REACTIONS (8)
  - Wheezing [Unknown]
  - Oropharyngeal pain [Unknown]
  - Asthenia [Unknown]
  - Productive cough [Unknown]
  - Lung disorder [Unknown]
  - Weight increased [Unknown]
  - Gait disturbance [Unknown]
  - Musculoskeletal chest pain [Unknown]

NARRATIVE: CASE EVENT DATE: 2018
